FAERS Safety Report 7100167-0 (Version None)
Quarter: 2010Q4

REPORT INFORMATION
  Report Type: 
  Country: None (occurrence: None)
  Receive Date: 20101112
  Receipt Date: 20100706
  Transmission Date: 20110411
  Serious: No
  Sender: FDA-Public Use
  Company Number: A0868655A

PATIENT
  Age: 48 Year
  Sex: Female

DRUGS (2)
  1. COREG [Suspect]
     Dosage: 12.5MG TWICE PER DAY
     Route: 048
     Dates: start: 20020101
  2. QUINIDINE HCL [Concomitant]

REACTIONS (1)
  - HYPERTENSION [None]
